FAERS Safety Report 5264017-X (Version None)
Quarter: 2007Q1

REPORT INFORMATION
  Report Type: 
  Country: None (occurrence: None)
  Receive Date: 20070313
  Receipt Date: 20070307
  Transmission Date: 20070707
  Serious: Yes (Other)
  Sender: FDA-Public Use
  Company Number: US-PFIZER INC-2007003344

PATIENT
  Age: 46 Year
  Sex: Female

DRUGS (9)
  1. CELEBREX [Suspect]
     Indication: OSTEOARTHRITIS
  2. IBUPROFEN [Suspect]
     Indication: ARTHRALGIA
     Dosage: FREQ:INTERVAL: EVERY DAY
  3. IBUPROFEN [Suspect]
  4. MAXZIDE [Concomitant]
  5. LEXAPRO [Concomitant]
  6. LIPITOR [Concomitant]
  7. AVANDIA [Concomitant]
  8. METAGLIP [Concomitant]
  9. DIOVANE [Concomitant]

REACTIONS (4)
  - CARDIAC FAILURE CONGESTIVE [None]
  - CHEST X-RAY ABNORMAL [None]
  - DYSPNOEA [None]
  - OEDEMA [None]
